FAERS Safety Report 11547095 (Version 1)
Quarter: 2015Q3

REPORT INFORMATION
  Report Type: Spontaneous
  Country: US (occurrence: US)
  Receive Date: 20150903
  Receipt Date: 20150903
  Transmission Date: 20151125
  Serious: No
  Sender: FDA-Public Use
  Company Number: US-ELI_LILLY_AND_COMPANY-US201012003243

PATIENT
  Age: 62 Year
  Sex: Female

DRUGS (2)
  1. TAGAMET [Concomitant]
     Active Substance: CIMETIDINE
  2. HUMALOG [Suspect]
     Active Substance: INSULIN LISPRO
     Indication: DIABETES MELLITUS
     Dosage: 20 U, UNK
     Dates: start: 2005

REACTIONS (1)
  - Incorrect dose administered [Unknown]
